FAERS Safety Report 6497196-7 (Version None)
Quarter: 2009Q4

REPORT INFORMATION
  Report Type: 
  Country: None (occurrence: None)
  Receive Date: 20091215
  Receipt Date: 20090604
  Transmission Date: 20100525
  Serious: No
  Sender: FDA-Public Use
  Company Number: A0788809A

PATIENT
  Age: 77 Year
  Sex: Male

DRUGS (6)
  1. AVODART [Suspect]
     Dosage: 1CAP PER DAY
     Route: 048
     Dates: start: 20060101, end: 20080601
  2. HEART MEDICATION [Concomitant]
  3. LIPITOR [Concomitant]
  4. RAMIPRIL [Concomitant]
  5. ZETIA [Concomitant]
  6. GLIPIZIDE [Concomitant]

REACTIONS (2)
  - BREAST TENDERNESS [None]
  - DRUG INEFFECTIVE [None]
